FAERS Safety Report 19190589 (Version 2)
Quarter: 2021Q2

REPORT INFORMATION
  Report Type: Spontaneous
  Country: US (occurrence: US)
  Receive Date: 20210428
  Receipt Date: 20210506
  Transmission Date: 20210717
  Serious: No
  Sender: FDA-Public Use
  Company Number: US-PFIZER INC-2021437971

PATIENT
  Age: 67 Year

DRUGS (1)
  1. ESTRING [Suspect]
     Active Substance: ESTRADIOL
     Dosage: UNK

REACTIONS (1)
  - No adverse event [Unknown]
